FAERS Safety Report 5131298-2 (Version None)
Quarter: 2006Q4

REPORT INFORMATION
  Report Type: 
  Country: None (occurrence: None)
  Receive Date: 20061020
  Receipt Date: 20061010
  Transmission Date: 20070319
  Serious: Yes (Hospitalization, Other)
  Sender: FDA-Public Use
  Company Number: AU-NOVOPROD-257675

PATIENT
  Age: 79 Year
  Sex: Female
  Weight: 103 kg

DRUGS (5)
  1. NOVOSEVEN [Suspect]
     Indication: HAEMORRHAGE
     Dosage: 7.2 MG, SINGLE
     Dates: start: 20060809, end: 20060809
  2. ASPIRIN [Concomitant]
  3. TRASYLOL [Concomitant]
  4. PROTAMINE SULFATE [Concomitant]
  5. PROTHROMBINEX [Concomitant]

REACTIONS (3)
  - ANAEMIA [None]
  - CARDIAC TAMPONADE [None]
  - STERNOTOMY [None]
